FAERS Safety Report 8134284-3 (Version None)
Quarter: 2012Q1

REPORT INFORMATION
  Report Type: 
  Country: None (occurrence: None)
  Receive Date: 20120208
  Receipt Date: 20120123
  Transmission Date: 20120608
  Serious: Yes (Hospitalization, Disabling, Other)
  Sender: FDA-Public Use
  Company Number: RISP20120002

PATIENT
  Age: 60 Year
  Sex: Female

DRUGS (2)
  1. RISPERIDONE [Suspect]
     Indication: SCHIZOAFFECTIVE DISORDER
     Dosage: 6 MG DAILY, ORAL
     Route: 048
  2. LITHIUM CARBONATE [Suspect]
     Indication: SCHIZOAFFECTIVE DISORDER
     Dosage: ORAL
     Route: 048

REACTIONS (13)
  - NEUROTOXICITY [None]
  - BLOOD SODIUM DECREASED [None]
  - EXTRAPYRAMIDAL DISORDER [None]
  - PARANOIA [None]
  - SALIVARY HYPERSECRETION [None]
  - TOXIC ENCEPHALOPATHY [None]
  - DRUG INTERACTION [None]
  - AKATHISIA [None]
  - ATAXIA [None]
  - BLOOD CREATINE PHOSPHOKINASE INCREASED [None]
  - NEUROPSYCHIATRIC SYNDROME [None]
  - PYREXIA [None]
  - CHILLS [None]
